FAERS Safety Report 13429510 (Version 1)
Quarter: 2017Q2

REPORT INFORMATION
  Report Type: Report from Study
  Country: FR (occurrence: FR)
  Receive Date: 20170411
  Receipt Date: 20170411
  Transmission Date: 20170830
  Serious: Yes (Hospitalization, Other)
  Sender: FDA-Public Use
  Company Number: FR-BRISTOL-MYERS SQUIBB COMPANY-BMS-2017-030673

PATIENT
  Age: 59 Year
  Sex: Male

DRUGS (1)
  1. ENTECAVIR. [Suspect]
     Active Substance: ENTECAVIR
     Indication: HEPATITIS
     Dosage: UNK
     Route: 065
     Dates: start: 2011

REACTIONS (4)
  - Liver transplant [Recovered/Resolved with Sequelae]
  - Packed red blood cell transfusion [Recovered/Resolved with Sequelae]
  - Transfusion [Unknown]
  - Platelet transfusion [Unknown]

NARRATIVE: CASE EVENT DATE: 20150228
